FAERS Safety Report 8084390-7 (Version None)
Quarter: 2012Q1

REPORT INFORMATION
  Report Type: 
  Country: None (occurrence: None)
  Receive Date: 20120128
  Receipt Date: 20110204
  Transmission Date: 20120608
  Serious: No
  Sender: FDA-Public Use
  Company Number: US-ABBOTT-11P-163-0703721-00

PATIENT
  Sex: Female
  Weight: 103.51 kg

DRUGS (15)
  1. LORTAB [Concomitant]
     Indication: PAIN
  2. VALTREX [Concomitant]
     Indication: PROPHYLAXIS
  3. METFFORMIN HYDROCHLORIDE [Concomitant]
     Indication: DIABETES MELLITUS
  4. VITAMIN D [Concomitant]
     Indication: VITAMIN SUPPLEMENTATION
  5. FOLIC ACID [Concomitant]
     Indication: SUPPLEMENTATION THERAPY
  6. HUMIRA [Suspect]
     Indication: RHEUMATOID ARTHRITIS
     Dates: start: 20101101
  7. HUMIRA [Suspect]
     Indication: PSORIASIS
  8. BONIVA [Concomitant]
     Indication: OSTEOPOROSIS
  9. GLIPIZIDE [Concomitant]
     Indication: DIABETES MELLITUS
  10. ONGLYZA [Concomitant]
     Indication: DIABETES MELLITUS
  11. OMEPRAZOLE [Concomitant]
     Indication: GASTROOESOPHAGEAL REFLUX DISEASE
  12. LISINOPRIL [Concomitant]
     Indication: HYPERTENSION
  13. ALPRAZOLAM [Concomitant]
     Indication: ANXIETY
  14. HUMIRA [Suspect]
     Indication: PSORIATIC ARTHROPATHY
  15. LIPITOR [Concomitant]
     Indication: BLOOD CHOLESTEROL INCREASED

REACTIONS (2)
  - WRONG TECHNIQUE IN DRUG USAGE PROCESS [None]
  - INJECTION SITE HAEMORRHAGE [None]
